FAERS Safety Report 7778055-6 (Version None)
Quarter: 2011Q3

REPORT INFORMATION
  Report Type: 
  Country: None (occurrence: None)
  Receive Date: 20110926
  Receipt Date: 20110912
  Transmission Date: 20111222
  Serious: Yes (Hospitalization, Other)
  Sender: FDA-Public Use
  Company Number: IT-ELI_LILLY_AND_COMPANY-EWC041241790

PATIENT
  Sex: Male
  Weight: 70 kg

DRUGS (4)
  1. CORTISONE ACETATE [Concomitant]
     Indication: ADRENAL INSUFFICIENCY
     Dosage: UNK, UNKNOWN
     Dates: start: 19990915
  2. SOMATROPIN [Suspect]
     Indication: GROWTH HORMONE DEFICIENCY
     Dosage: 0.4 MG, DAILY (1/D)
     Route: 058
     Dates: start: 19991018, end: 20041206
  3. LEVOTHYROXINE SODIUM [Concomitant]
     Indication: HYPOTHYROIDISM
     Dosage: UNK, UNKNOWN
     Dates: start: 19990915
  4. TESTOSTERONE ENANTATE [Concomitant]
     Indication: HYPOGONADISM
     Dosage: UNK, UNKNOWN
     Dates: start: 19990915

REACTIONS (1)
  - RATHKE'S CLEFT CYST [None]
